FAERS Safety Report 8611682-2 (Version None)
Quarter: 2012Q3

REPORT INFORMATION
  Report Type: 
  Country: None (occurrence: None)
  Receive Date: 20120822
  Receipt Date: 20120814
  Transmission Date: 20120928
  Serious: Yes (Other)
  Sender: FDA-Public Use
  Company Number: PR-JNJFOC-20120807778

PATIENT
  Age: 79 Year
  Sex: Male

DRUGS (2)
  1. VERAPAMIL [Concomitant]
  2. XARELTO [Suspect]
     Indication: PRODUCT USED FOR UNKNOWN INDICATION
     Route: 048

REACTIONS (2)
  - DYSPEPSIA [None]
  - PANCREATIC NEOPLASM [None]
